FAERS Safety Report 7512311-1 (Version None)
Quarter: 2011Q2

REPORT INFORMATION
  Report Type: 
  Country: None (occurrence: None)
  Receive Date: 20110531
  Receipt Date: 20110517
  Transmission Date: 20111010
  Serious: Yes (Hospitalization)
  Sender: FDA-Public Use
  Company Number: PHHY2011SE42676

PATIENT
  Sex: Female

DRUGS (5)
  1. RITALIN [Suspect]
     Indication: ATTENTION DEFICIT/HYPERACTIVITY DISORDER
     Dosage: 30 MG, DAILY
     Route: 048
     Dates: start: 20110311
  2. RITALIN [Suspect]
     Dosage: 40 MG, DAILY
     Route: 048
     Dates: end: 20110329
  3. ABILIFY [Concomitant]
     Dosage: UNK UKN, UNK
  4. MINI-PE [Concomitant]
     Dosage: UNK UKN, UNK
  5. IMOVANE [Concomitant]
     Dosage: UNK UKN, UNK

REACTIONS (2)
  - CONTUSION [None]
  - HAEMATOMA [None]
